FAERS Safety Report 7469871-9 (Version None)
Quarter: 2011Q2

REPORT INFORMATION
  Report Type: 
  Country: None (occurrence: None)
  Receive Date: 20110510
  Receipt Date: 20110505
  Transmission Date: 20111010
  Serious: Yes (Other)
  Sender: FDA-Public Use
  Company Number: US-ROCHE-737939

PATIENT
  Sex: Female
  Weight: 52 kg

DRUGS (10)
  1. METHOTREXATE [Concomitant]
     Dosage: DOSE: 4 TABS WEAKLY, DOSE 10 MG
     Route: 048
     Dates: start: 20050801
  2. LORAZEPAM [Concomitant]
     Dates: start: 20100224
  3. ACTEMRA [Suspect]
     Indication: RHEUMATOID ARTHRITIS
     Dosage: LAST DOSE PRIOR TO SAE: 23 AUGUST 2010
     Route: 042
     Dates: start: 20090728, end: 20100922
  4. FISH OIL [Concomitant]
     Dates: start: 19920101
  5. MULTI-VITAMIN [Concomitant]
     Dosage: TDD: ONE TABLET
     Dates: start: 19900101
  6. ACETAMINOPHEN [Concomitant]
     Dates: start: 20000101
  7. BONIVA [Concomitant]
     Dates: start: 20100115
  8. DICLOFENAC [Concomitant]
     Dates: start: 20080401
  9. FOLIC ACID [Concomitant]
     Dates: start: 20011001
  10. CALCIUM/VITAMIN D [Concomitant]
     Dates: start: 20010101

REACTIONS (1)
  - BREAST CANCER IN SITU [None]
